FAERS Safety Report 4280629-4 (Version None)
Quarter: 2004Q1

REPORT INFORMATION
  Report Type: 
  Country: None (occurrence: None)
  Receive Date: 20040127
  Receipt Date: 20040121
  Transmission Date: 20041129
  Serious: No
  Sender: FDA-Public Use
  Company Number: 2004UW01106

PATIENT
  Sex: Male
  Weight: 90.7194 kg

DRUGS (1)
  1. DIPRIVAN [Suspect]
     Dates: start: 20040101, end: 20040101

REACTIONS (1)
  - COMA [None]
